FAERS Safety Report 7798560-6 (Version None)
Quarter: 2011Q4

REPORT INFORMATION
  Report Type: 
  Country: None (occurrence: None)
  Receive Date: 20111005
  Receipt Date: 20110930
  Transmission Date: 20120403
  Serious: Yes (Hospitalization, Other)
  Sender: FDA-Public Use
  Company Number: US-MERCK-1106USA00375

PATIENT
  Sex: Female

DRUGS (15)
  1. OMEGA-3 MARINE TRIGLYCERIDES [Concomitant]
     Route: 048
  2. FOSAMAX [Suspect]
     Route: 048
     Dates: start: 20080819, end: 20081025
  3. FOSAMAX [Suspect]
     Indication: OSTEOPOROSIS
     Route: 048
     Dates: start: 20080512
  4. CHONDROITIN SULFATE SODIUM AND GLUCOSAMINE SULFATE [Concomitant]
     Route: 048
  5. COLESTID [Concomitant]
     Route: 048
     Dates: start: 20050101
  6. NEXIUM [Concomitant]
     Route: 048
     Dates: start: 20050101, end: 20100101
  7. CALCIUM (UNSPECIFIED) [Concomitant]
     Route: 048
  8. FLAXSEED [Concomitant]
     Route: 048
  9. ALENDRONATE SODIUM [Suspect]
     Route: 048
  10. PROTONIX [Concomitant]
     Route: 048
     Dates: start: 20050101, end: 20101101
  11. VITAMIN D (UNSPECIFIED) [Concomitant]
     Route: 048
  12. POTASSIUM (UNSPECIFIED) [Concomitant]
     Route: 048
  13. FOSAMAX [Suspect]
     Route: 048
     Dates: start: 20090605, end: 20101025
  14. FOSAMAX [Suspect]
     Indication: OSTEOPENIA
     Route: 048
     Dates: start: 20080512
  15. VITAMINS (UNSPECIFIED) [Concomitant]
     Route: 048

REACTIONS (5)
  - FEMUR FRACTURE [None]
  - BONE DISORDER [None]
  - FRACTURE NONUNION [None]
  - BASAL CELL CARCINOMA [None]
  - ARTHROPATHY [None]
